FAERS Safety Report 8403139-9 (Version None)
Quarter: 2012Q2

REPORT INFORMATION
  Report Type: 
  Country: None (occurrence: None)
  Receive Date: 20120323
  Receipt Date: 20110615
  Transmission Date: 20120825
  Serious: Yes (Hospitalization)
  Sender: FDA-Public Use
  Company Number: 163-21880-11040973

PATIENT
  Age: 64 Year
  Sex: Female
  Weight: 47.1741 kg

DRUGS (14)
  1. PRILOSEC [Concomitant]
  2. SYNTHROID [Concomitant]
  3. CARDIZEM [Concomitant]
  4. COUMADIN [Concomitant]
  5. LANOXIN [Concomitant]
  6. REVLIMID [Suspect]
     Indication: MULTIPLE MYELOMA
     Dosage: 10 MG, 1 IN 1 D, PO; 10 MG, QD, FOR 28 DAYS, PO; 10 MG, QD FOR 28 DAYS, PO
     Route: 048
     Dates: start: 20100701
  7. REVLIMID [Suspect]
     Indication: MULTIPLE MYELOMA
     Dosage: 10 MG, 1 IN 1 D, PO; 10 MG, QD, FOR 28 DAYS, PO; 10 MG, QD FOR 28 DAYS, PO
     Route: 048
     Dates: start: 20110601
  8. REVLIMID [Suspect]
     Indication: MULTIPLE MYELOMA
     Dosage: 10 MG, 1 IN 1 D, PO; 10 MG, QD, FOR 28 DAYS, PO; 10 MG, QD FOR 28 DAYS, PO
     Route: 048
     Dates: start: 20110301, end: 20110301
  9. SPIRIVA [Concomitant]
  10. VENTOLIN [Concomitant]
  11. NASAL SPRAY (NASAL DECONGESTANTS FOR SYSTEMIC USE) [Concomitant]
  12. CELEXA [Concomitant]
  13. POTASSIUM [Concomitant]
  14. COMPAZINE [Concomitant]

REACTIONS (3)
  - HEPATIC ENZYME INCREASED [None]
  - DEHYDRATION [None]
  - NAUSEA [None]
